FAERS Safety Report 4338237-2 (Version None)
Quarter: 2004Q2

REPORT INFORMATION
  Report Type: 
  Country: None (occurrence: None)
  Receive Date: 20040414
  Receipt Date: 20030604
  Transmission Date: 20050107
  Serious: Yes (Other)
  Sender: FDA-Public Use
  Company Number: 12296117

PATIENT
  Age: 64 Year
  Sex: Male

DRUGS (3)
  1. CISPLATIN [Suspect]
     Indication: SMALL CELL CARCINOMA
     Dates: start: 19850304
  2. ETOPOSIDE [Suspect]
     Indication: SMALL CELL CARCINOMA
     Dosage: DAYS 1-4
     Dates: start: 19850304
  3. RADIATION THERAPY [Concomitant]
     Indication: SMALL CELL CARCINOMA
     Dates: start: 19850304

REACTIONS (3)
  - PERITONEAL DIALYSIS [None]
  - RENAL FAILURE [None]
  - TUMOUR LYSIS SYNDROME [None]
